FAERS Safety Report 13090442 (Version 3)
Quarter: 2017Q1

REPORT INFORMATION
  Report Type: Spontaneous
  Country: US (occurrence: US)
  Receive Date: 20170105
  Receipt Date: 20170224
  Transmission Date: 20170428
  Serious: Yes (Other)
  Sender: FDA-Public Use
  Company Number: US-ACTELION-A-NJ2016-147670

PATIENT
  Age: 73 Year
  Sex: Female
  Weight: 116.1 kg

DRUGS (5)
  1. OPSUMIT [Suspect]
     Active Substance: MACITENTAN
     Indication: PULMONARY ARTERIAL HYPERTENSION
     Dosage: 10 MG, QD
     Route: 048
     Dates: start: 20160810
  2. ORENITRAM [Suspect]
     Active Substance: TREPROSTINIL
     Indication: PRODUCT USED FOR UNKNOWN INDICATION
     Dosage: UNK
     Route: 065
     Dates: end: 201612
  3. ADEMPAS [Suspect]
     Active Substance: RIOCIGUAT
     Indication: PRODUCT USED FOR UNKNOWN INDICATION
     Dosage: 2.5 MG, TID
     Route: 048
     Dates: start: 201610
  4. WARFARIN [Concomitant]
     Active Substance: WARFARIN
  5. ADEMPAS [Suspect]
     Active Substance: RIOCIGUAT
     Dosage: 2 UNK, UNK
     Route: 048

REACTIONS (10)
  - Atrial fibrillation [Unknown]
  - Cardiac pacemaker insertion [Unknown]
  - Feeling abnormal [Unknown]
  - Haemoptysis [Unknown]
  - Drug intolerance [Unknown]
  - Constipation [Unknown]
  - Dizziness [Unknown]
  - Hypotension [Unknown]
  - Activities of daily living impaired [Unknown]
  - Diarrhoea [Unknown]
